FAERS Safety Report 18984750 (Version 5)
Quarter: 2021Q3

REPORT INFORMATION
  Report Type: Report from Study
  Country: IT (occurrence: IT)
  Receive Date: 20210308
  Receipt Date: 20210727
  Transmission Date: 20211014
  Serious: Yes (Other)
  Sender: FDA-Public Use
  Company Number: IT-CELLTRION INC.-2021IT002701

PATIENT

DRUGS (6)
  1. PACLITAXEL. [Suspect]
     Active Substance: PACLITAXEL
     Indication: HER2 POSITIVE BREAST CANCER
     Dosage: 160 MG, LAST DOSE BEFORE SAE ON 28/APR/2020, 6 CYCLES (12 DOSES)
     Route: 042
     Dates: start: 20191231, end: 20200428
  2. CARBOPLATINUM [Suspect]
     Active Substance: CARBOPLATIN
     Indication: HER2 POSITIVE BREAST CANCER
     Dosage: 220 MG, LAST DOSE BEFORE SAE ON 28/APR/2020, 6 CYCLES (12 DOSES)
     Route: 042
     Dates: start: 20190831, end: 20200428
  3. TAMOXIFEN [Concomitant]
     Active Substance: TAMOXIFEN
     Dosage: 20 MG
     Dates: start: 20200601, end: 20200824
  4. ATEZOLIZUMAB. [Suspect]
     Active Substance: ATEZOLIZUMAB
     Indication: HER2 POSITIVE BREAST CANCER
     Dosage: 1200 MG, EVERY 3 WEEKS, LAST DOSE BEFORE SAE ON 25/AUG/2020, 10 CYCLES
     Route: 041
     Dates: start: 20191231, end: 20200825
  5. PERTUZUMAB. [Suspect]
     Active Substance: PERTUZUMAB
     Indication: HER2 POSITIVE BREAST CANCER
     Dosage: 420 MG, LAST DOSE BEFORE SAE ON 25/AUG/2020, 10 CYCLES
     Route: 042
     Dates: start: 20191231
  6. TRASTUZUMAB (UNKNOWN) [Suspect]
     Active Substance: TRASTUZUMAB
     Indication: HER2 POSITIVE BREAST CANCER
     Dosage: 426 MG, LAST DOSE BEFORE SAE ON 25/AUG/2020, 10 CYCLES
     Route: 042
     Dates: start: 20191231

REACTIONS (1)
  - Tenosynovitis [Recovered/Resolved]

NARRATIVE: CASE EVENT DATE: 20200918
